FAERS Safety Report 7045497-6 (Version None)
Quarter: 2010Q4

REPORT INFORMATION
  Report Type: 
  Country: None (occurrence: None)
  Receive Date: 20101014
  Receipt Date: 20101005
  Transmission Date: 20110411
  Serious: Yes (Hospitalization)
  Sender: FDA-Public Use
  Company Number: US-ASTRAZENECA-2010SE46989

PATIENT
  Age: 912 Month
  Sex: Female
  Weight: 72.6 kg

DRUGS (9)
  1. ARIMIDEX [Suspect]
     Indication: BREAST CANCER
     Route: 048
     Dates: start: 20050101
  2. ARIMIDEX [Suspect]
     Route: 048
  3. ARIMIDEX [Suspect]
     Route: 048
     Dates: end: 20100901
  4. PLAVIX [Concomitant]
  5. ASPIRIN [Concomitant]
  6. METOPROLOL [Concomitant]
     Indication: BLOOD PRESSURE ABNORMAL
  7. ATACAND [Concomitant]
     Indication: BLOOD PRESSURE ABNORMAL
  8. NORVASC [Concomitant]
  9. PRAVACHOL [Concomitant]
     Indication: HYPERCHOLESTEROLAEMIA

REACTIONS (9)
  - ALOPECIA [None]
  - ANGINA PECTORIS [None]
  - AUTOIMMUNE THYROIDITIS [None]
  - BLOOD PRESSURE INADEQUATELY CONTROLLED [None]
  - BONE PAIN [None]
  - CARDIAC DISORDER [None]
  - HYPERCHOLESTEROLAEMIA [None]
  - MACULAR DEGENERATION [None]
  - PAIN IN JAW [None]
